FAERS Safety Report 8844490 (Version 1)
Quarter: 2012Q4

REPORT INFORMATION
  Report Type: Spontaneous
  Country: JP (occurrence: None)
  Receive Date: 20121012
  Receipt Date: 20121012
  Transmission Date: 20130627
  Serious: Yes (Hospitalization)
  Sender: FDA-Public Use
  Company Number: JP-2012-16520

PATIENT
  Age: 66 Year
  Sex: Male

DRUGS (3)
  1. PLETAAL [Suspect]
     Indication: ARTERIOSCLEROSIS OBLITERANS
     Dosage: 200 Mg milligram(s), daily dose, Oral
     Route: 048
  2. PLETAAL [Suspect]
     Indication: ARTERIOSCLEROSIS OBLITERANS
     Route: 048
  3. WARFARIN POTASSIUM [Concomitant]

REACTIONS (5)
  - Gastrooesophageal reflux disease [None]
  - Haematemesis [None]
  - Melaena [None]
  - Nausea [None]
  - Oesophageal ulcer haemorrhage [None]
